FAERS Safety Report 13358553 (Version 1)
Quarter: 2017Q1

REPORT INFORMATION
  Report Type: Spontaneous
  Country: US (occurrence: US)
  Receive Date: 20170322
  Receipt Date: 20170322
  Transmission Date: 20170429
  Serious: Yes (Other)
  Sender: FDA-Public Use
  Company Number: US-TEVA-751173USA

PATIENT
  Age: 67 Year
  Sex: Female

DRUGS (5)
  1. OROCAL [Concomitant]
     Active Substance: CALCIUM CARBONATE
  2. LETROZOLE. [Suspect]
     Active Substance: LETROZOLE
     Route: 048
  3. XGEVA [Concomitant]
     Active Substance: DENOSUMAB
     Indication: BREAST CANCER
     Route: 058
     Dates: start: 2015, end: 201605
  4. PROPRANOLOL [Concomitant]
     Active Substance: PROPRANOLOL HYDROCHLORIDE
  5. AVLOCARDYL [Concomitant]
     Active Substance: PROPRANOLOL HYDROCHLORIDE

REACTIONS (9)
  - Loose tooth [Unknown]
  - Tooth disorder [Unknown]
  - Dental alveolar anomaly [Unknown]
  - Impaired healing [Unknown]
  - Mucosal inflammation [Unknown]
  - Osteonecrosis of jaw [Not Recovered/Not Resolved]
  - Gingival pain [Unknown]
  - Tooth infection [Unknown]
  - Noninfective gingivitis [Unknown]

NARRATIVE: CASE EVENT DATE: 201604
